FAERS Safety Report 7744156-1 (Version None)
Quarter: 2011Q3

REPORT INFORMATION
  Report Type: 
  Country: None (occurrence: None)
  Receive Date: 20110912
  Receipt Date: 20110906
  Transmission Date: 20111222
  Serious: Yes (Death)
  Sender: FDA-Public Use
  Company Number: US-PFIZER INC-2011099711

PATIENT
  Sex: Female

DRUGS (25)
  1. ARIMIDEX [Concomitant]
     Dosage: 1 MG, 1X/DAY
     Dates: start: 20090701
  2. MILK OF MAGNESIA TAB [Concomitant]
     Dosage: 30 ML, 2X/DAY
  3. LORAZEPAM [Concomitant]
     Indication: ANXIETY
     Dosage: 1 MG, AS NEEDED 4 X DAILY
  4. AMBIEN [Concomitant]
     Indication: INSOMNIA
     Dosage: 5 MG, AT BEDTIME
  5. DULCOLAX [Concomitant]
     Indication: CONSTIPATION
     Dosage: ONE TO TWO TABLETS DAILY AS NEEDED
  6. DULCOLAX [Concomitant]
     Dosage: DAILY, AS NEEDED
     Route: 054
  7. MAGNESIUM OXIDE [Concomitant]
     Dosage: 400 MG, 2X/DAY
  8. AMIODARONE [Concomitant]
     Dosage: 200 MG, 1X/DAY
  9. LASIX [Concomitant]
     Dosage: 80 MG, 1X/DAY
  10. METOPROLOL [Concomitant]
     Dosage: 25 MG, 1X/DAY
  11. ALDACTONE [Concomitant]
     Dosage: 25 MG, 1X/DAY, AT NOON
  12. MS CONTIN [Concomitant]
     Dosage: 15 MG, Q 12HRS
  13. OMEPRAZOLE [Concomitant]
     Dosage: 20 MG, 1X/DAY
  14. PREDNISONE [Concomitant]
     Dosage: 10 MG, 1X/DAY
  15. REMERON [Concomitant]
     Dosage: 15 MG, AT BEDTIME
  16. TYLENOL-500 [Concomitant]
     Indication: PYREXIA
     Dosage: 1000 MG, Q 6 HRS AS NEEDED
  17. LIDOCAINE HCL VISCOUS [Concomitant]
     Dosage: SWISH AND SPIT EVERY TWO TO FOUR HOURS AS NEEDED
  18. SENOKOT [Concomitant]
     Dosage: 2 TABS
  19. BUMEX [Concomitant]
     Dosage: 0.5 MG, 1X/DAY, AT NOON
  20. MIRALAX [Concomitant]
     Dosage: DAILY, AS NEEDED
  21. CELEXA [Concomitant]
     Dosage: 20 MG, 1X/DAY
  22. KLOR-CON [Concomitant]
     Dosage: 20 MEQ, 1X/DAY
  23. ZOFRAN [Concomitant]
     Indication: NAUSEA
     Dosage: 4 MG, Q 8HRS AS NEEDED
  24. SUTENT [Suspect]
     Indication: RENAL CANCER
     Dosage: 25 MG, 1X/DAY,  TWO WEEKS ON AND  ONE WEEK OFF
     Route: 048
     Dates: start: 20110406, end: 20110427
  25. ROXANOL [Concomitant]
     Indication: PAIN
     Dosage: 20 MG/ML, 1/2 CC EVERY 2 HRS

REACTIONS (5)
  - RASH GENERALISED [None]
  - SKIN HYPERPIGMENTATION [None]
  - CONSTIPATION [None]
  - BLISTER [None]
  - DEATH [None]
